FAERS Safety Report 25909419 (Version 1)
Quarter: 2025Q4

REPORT INFORMATION
  Report Type: Report from Study
  Country: US (occurrence: US)
  Receive Date: 20251011
  Receipt Date: 20251011
  Transmission Date: 20260118
  Serious: Yes (Other)
  Sender: ABBVIE
  Company Number: US-ABBVIE-6497809

PATIENT
  Age: 52 Year
  Sex: Female

DRUGS (2)
  1. SKYRIZI [Suspect]
     Active Substance: RISANKIZUMAB-RZAA
     Indication: Psoriasis
     Dosage: TIME INTERVAL: TOTAL: AT WEEK 0?STRENGTH 150MG/ML
     Route: 058
     Dates: start: 20250826, end: 20250826
  2. SKYRIZI [Suspect]
     Active Substance: RISANKIZUMAB-RZAA
     Dosage: TIME INTERVAL: TOTAL: AT WEEK 4?EVERY 12 WEEKS THEREAFTER?STRENGTH 150MG/ML
     Route: 058
     Dates: start: 20250923

REACTIONS (4)
  - Tuberculosis [Unknown]
  - Hepatitis B [Unknown]
  - Dry skin [Unknown]
  - Erythema [Not Recovered/Not Resolved]

NARRATIVE: CASE EVENT DATE: 20250101
